FAERS Safety Report 5671714-0 (Version None)
Quarter: 2008Q1

REPORT INFORMATION
  Report Type: 
  Country: None (occurrence: None)
  Receive Date: 20080314
  Receipt Date: 20080227
  Transmission Date: 20080703
  Serious: Yes (Hospitalization)
  Sender: FDA-Public Use
  Company Number: CHPA2008US03974

PATIENT
  Sex: Male

DRUGS (1)
  1. TRIAMINIC SYRUP COLD + ALLERGY ORANGE (NCH)(CHLORPHENIRAMINE MALEATE, [Suspect]

REACTIONS (3)
  - CEREBRAL PALSY [None]
  - CONCOMITANT DISEASE AGGRAVATED [None]
  - DYSKINESIA [None]
